FAERS Safety Report 18836397 (Version 1)
Quarter: 2021Q1

REPORT INFORMATION
  Report Type: Report from Study
  Country: BR (occurrence: BR)
  Receive Date: 20210203
  Receipt Date: 20210203
  Transmission Date: 20210419
  Serious: Yes (Other)
  Sender: FDA-Public Use
  Company Number: BR-JNJFOC-20210144664

PATIENT
  Age: 33 Year
  Sex: Female
  Weight: 50 kg

DRUGS (5)
  1. INFLIXIMAB, RECOMBINANT [Suspect]
     Active Substance: INFLIXIMAB
     Indication: COLITIS ULCERATIVE
     Route: 042
     Dates: start: 20200430
  2. MESACOL [MESALAZINE] [Concomitant]
     Active Substance: MESALAMINE
  3. MESALAZINE [Concomitant]
     Active Substance: MESALAMINE
  4. INFLIXIMAB, RECOMBINANT [Suspect]
     Active Substance: INFLIXIMAB
     Indication: COLITIS
  5. AZATHIOPRINE. [Concomitant]
     Active Substance: AZATHIOPRINE

REACTIONS (2)
  - COVID-19 [Recovering/Resolving]
  - Colitis ulcerative [Unknown]

NARRATIVE: CASE EVENT DATE: 202009
